FAERS Safety Report 18092521 (Version 3)
Quarter: 2021Q2

REPORT INFORMATION
  Report Type: Spontaneous
  Country: US (occurrence: US)
  Receive Date: 20200730
  Receipt Date: 20210621
  Transmission Date: 20210717
  Serious: No
  Sender: FDA-Public Use
  Company Number: US-PFIZER INC-2020288451

PATIENT
  Age: 51 Year
  Sex: Female

DRUGS (1)
  1. XELJANZ XR [Suspect]
     Active Substance: TOFACITINIB CITRATE
     Dosage: 11 MG

REACTIONS (7)
  - Pain [Unknown]
  - Joint swelling [Unknown]
  - Depressed mood [Unknown]
  - Malaise [Unknown]
  - Product dose omission issue [Unknown]
  - Swelling [Unknown]
  - Gait disturbance [Unknown]
